FAERS Safety Report 8111543 (Version 2)
Quarter: 2013Q4

REPORT INFORMATION
  Report Type: Spontaneous
  Country: PL (occurrence: PL)
  Receive Date: 20110829
  Receipt Date: 20131121
  Transmission Date: 20140711
  Serious: Yes (Death, Other)
  Sender: FDA-Public Use
  Company Number: PHHY2011PL76023

PATIENT
  Age: 69 Year
  Sex: Female

DRUGS (10)
  1. PAROXETINE [Suspect]
     Indication: DEPRESSION
     Dosage: 20 MG, DAILY
  2. SERTRALINE [Suspect]
     Indication: DEPRESSION
     Dosage: 100 MG, DAILY
  3. VENLAFAXINE [Suspect]
     Indication: DEPRESSION
     Dosage: 225 MG, DAILY
  4. MIRTAZAPINE [Suspect]
     Indication: DEPRESSION
     Dosage: 30 MG, DAILY
  5. MIRTAZAPINE [Suspect]
     Dosage: 45 MG, DAILY
  6. ESCITALOPRAM [Suspect]
     Indication: DEPRESSION
     Dosage: 20 MG, DAILY
  7. QUETIAPINE [Suspect]
     Indication: DEPRESSION
     Dosage: 100 MG, DAILY
  8. QUETIAPINE [Suspect]
     Dosage: 300 MG, DAILY
  9. OLANZAPINE [Suspect]
     Dosage: 5 MG, DAILY
  10. REBOXETINE [Suspect]
     Indication: DEPRESSION
     Dosage: 4 MG, DAILY

REACTIONS (3)
  - Embolism venous [Fatal]
  - Pulmonary embolism [Fatal]
  - Deep vein thrombosis [Unknown]
